FAERS Safety Report 23838576 (Version 1)
Quarter: 2024Q2

REPORT INFORMATION
  Report Type: Spontaneous
  Country: US (occurrence: None)
  Receive Date: 20240509
  Receipt Date: 20240509
  Transmission Date: 20240715
  Serious: Yes (Other)
  Sender: FDA-Public Use
  Company Number: None

PATIENT
  Age: 77 Year
  Sex: Female

DRUGS (1)
  1. CROMOLYN SODIUM [Suspect]
     Active Substance: CROMOLYN SODIUM
     Dosage: FREQUENCY : 3 TIMES A DAY;?

REACTIONS (12)
  - Tachycardia [None]
  - Diarrhoea [None]
  - Abdominal pain [None]
  - Cognitive disorder [None]
  - Flatulence [None]
  - Insomnia [None]
  - Anxiety [None]
  - Depression [None]
  - Nervousness [None]
  - Fatigue [None]
  - Nausea [None]
  - Tinnitus [None]
